FAERS Safety Report 4583645-8 (Version None)
Quarter: 2005Q1

REPORT INFORMATION
  Report Type: 
  Country: None (occurrence: None)
  Receive Date: 20050211
  Receipt Date: 20050127
  Transmission Date: 20050727
  Serious: Yes (Hospitalization)
  Sender: FDA-Public Use
  Company Number: 2004BI002224

PATIENT
  Age: 45 Year
  Sex: Male

DRUGS (4)
  1. AVONEX [Suspect]
     Indication: MULTIPLE SCLEROSIS
     Dosage: 30 UG; QW; IM
     Route: 030
     Dates: start: 20040601
  2. BACLOFEN [Concomitant]
  3. PROVIGIL [Concomitant]
  4. ADVIL [Concomitant]

REACTIONS (1)
  - APPENDICITIS [None]
